FAERS Safety Report 8044343-1 (Version None)
Quarter: 2012Q1

REPORT INFORMATION
  Report Type: 
  Country: None (occurrence: None)
  Receive Date: 20120111
  Receipt Date: 20120111
  Transmission Date: 20120608
  Serious: Yes (Hospitalization)
  Sender: FDA-Public Use
  Company Number: None

PATIENT
  Age: 77 Year
  Sex: Female

DRUGS (7)
  1. LETAIRIS [Suspect]
     Indication: PULMONARY ARTERIAL HYPERTENSION
     Dosage: 5MG DAILY ORALLY
     Route: 048
     Dates: start: 20111101, end: 20111201
  2. ASPIRIN [Concomitant]
  3. LASIX [Concomitant]
  4. RANITIDINE [Concomitant]
  5. LOVASTATIN [Concomitant]
  6. REVATIO [Concomitant]
  7. WARFARIN SODIUM [Concomitant]

REACTIONS (6)
  - OEDEMA PERIPHERAL [None]
  - ASTHENIA [None]
  - FATIGUE [None]
  - DYSPNOEA [None]
  - CHRONIC RESPIRATORY FAILURE [None]
  - CONDITION AGGRAVATED [None]
